FAERS Safety Report 7511657-0 (Version None)
Quarter: 2011Q2

REPORT INFORMATION
  Report Type: 
  Country: None (occurrence: None)
  Receive Date: 20110531
  Receipt Date: 20110513
  Transmission Date: 20111010
  Serious: Yes (Hospitalization, Congenital Anomaly, Other)
  Sender: FDA-Public Use
  Company Number: DE-MYLANLABS-2011S1009917

PATIENT
  Age: 0 Year
  Sex: Female
  Weight: 1.97 kg

DRUGS (7)
  1. FOLIO [Concomitant]
     Indication: PROPHYLAXIS OF NEURAL TUBE DEFECT
     Route: 064
     Dates: start: 20100301, end: 20101026
  2. MESALAMINE [Concomitant]
     Route: 064
     Dates: start: 20100301, end: 20101026
  3. SALOFALK /00747601/ [Concomitant]
     Route: 064
     Dates: start: 20100301, end: 20101026
  4. LEVOTHYROXINE SODIUM [Concomitant]
     Route: 064
     Dates: start: 20100301, end: 20101026
  5. NIFEDIPINE [Concomitant]
     Route: 064
     Dates: start: 20101014
  6. AZATHIOPRINE [Suspect]
     Indication: CROHN'S DISEASE
     Dosage: 100 [MG/D ]
     Route: 064
     Dates: start: 20100301, end: 20101026
  7. AFLURIA [Suspect]
     Indication: IMMUNISATION
     Route: 064
     Dates: start: 20100928, end: 20100928

REACTIONS (7)
  - PREMATURE BABY [None]
  - HYPERBILIRUBINAEMIA NEONATAL [None]
  - ANAEMIA NEONATAL [None]
  - CONGENITAL HEARING DISORDER [None]
  - FEEDING DISORDER NEONATAL [None]
  - MATERNAL DRUGS AFFECTING FOETUS [None]
  - DRUG EXPOSURE DURING PREGNANCY [None]
